FAERS Safety Report 15786418 (Version 1)
Quarter: 2019Q1

REPORT INFORMATION
  Report Type: Spontaneous
  Country: US (occurrence: US)
  Receive Date: 20190103
  Receipt Date: 20190103
  Transmission Date: 20190417
  Serious: Yes (Other)
  Sender: FDA-Public Use
  Company Number: None

PATIENT
  Age: 74 Year
  Sex: Female

DRUGS (1)
  1. COSENTYX [Suspect]
     Active Substance: SECUKINUMAB
     Indication: ANKYLOSING SPONDYLITIS
     Dosage: ?          OTHER FREQUENCY:EVERY 4 WEEKS;?
     Route: 058
     Dates: start: 20180101, end: 20181122

REACTIONS (9)
  - Vision blurred [None]
  - Suicidal ideation [None]
  - Abdominal pain [None]
  - Eye irritation [None]
  - Dyspnoea [None]
  - Depression [None]
  - Paraesthesia [None]
  - Rectal haemorrhage [None]
  - Fatigue [None]

NARRATIVE: CASE EVENT DATE: 20180801
